FAERS Safety Report 8615610-5 (Version None)
Quarter: 2012Q3

REPORT INFORMATION
  Report Type: 
  Country: None (occurrence: None)
  Receive Date: 20120823
  Receipt Date: 20120813
  Transmission Date: 20120928
  Serious: Yes (Hospitalization)
  Sender: FDA-Public Use
  Company Number: US-ELI_LILLY_AND_COMPANY-US201207004189

PATIENT
  Sex: Female
  Weight: 81.633 kg

DRUGS (2)
  1. FORTEO [Suspect]
     Indication: OSTEOPOROSIS
     Dosage: UNK, UNKNOWN
     Route: 058
     Dates: start: 20110701, end: 20120401
  2. FORTEO [Suspect]
     Dosage: UNK, UNKNOWN
     Route: 058
     Dates: start: 20120801

REACTIONS (1)
  - KNEE ARTHROPLASTY [None]
